FAERS Safety Report 9788428 (Version 2)
Quarter: 2014Q1

REPORT INFORMATION
  Report Type: Spontaneous
  Country: IL (occurrence: IL)
  Receive Date: 20131230
  Receipt Date: 20140206
  Transmission Date: 20141002
  Serious: Yes (Death)
  Sender: FDA-Public Use
  Company Number: IL-PFIZER INC-2013368243

PATIENT
  Age: 70 Year
  Sex: Female

DRUGS (1)
  1. AXITINIB [Suspect]
     Indication: NEOPLASM MALIGNANT
     Dosage: UNK

REACTIONS (2)
  - Disease progression [Fatal]
  - Neoplasm malignant [Fatal]
